FAERS Safety Report 12609710 (Version 1)
Quarter: 2016Q3

REPORT INFORMATION
  Report Type: Spontaneous
  Country: RO (occurrence: RO)
  Receive Date: 20160801
  Receipt Date: 20160801
  Transmission Date: 20161109
  Serious: Yes (Hospitalization)
  Sender: FDA-Public Use
  Company Number: RO-ACCORD-042771

PATIENT
  Age: 63 Year
  Sex: Male

DRUGS (8)
  1. ACC [Concomitant]
     Active Substance: ACETYLCYSTEINE
     Indication: ANTICOAGULANT THERAPY
     Dosage: 2 PILLS/DAY
     Route: 048
  2. ASPACARDIN [Concomitant]
     Indication: ANTICOAGULANT THERAPY
     Dosage: 6 PILLS/DAY
     Route: 048
  3. GEMCITABINE/GEMCITABINE HYDROCHLORIDE [Suspect]
     Active Substance: GEMCITABINE\GEMCITABINE HYDROCHLORIDE
     Indication: LEIOMYOSARCOMA
     Dosage: DAY 1 AND 8
     Dates: start: 201410
  4. DIUREX [Concomitant]
     Active Substance: AMILORIDE HYDROCHLORIDE\HYDROCHLOROTHIAZIDE
     Indication: ANTICOAGULANT THERAPY
     Dosage: 1 PILL/DAY
     Route: 048
  5. GRANULOCYTE COLONY STIMULATING [Concomitant]
     Active Substance: GRANULOCYTE COLONY-STIMULATING FACTOR NOS
     Indication: LEIOMYOSARCOMA
     Dates: start: 201410
  6. CORDARONE [Concomitant]
     Active Substance: AMIODARONE HYDROCHLORIDE
     Indication: ANTICOAGULANT THERAPY
     Dosage: 1 PILL/DAY
     Route: 048
  7. DOCETAXEL. [Suspect]
     Active Substance: DOCETAXEL
     Indication: LEIOMYOSARCOMA
     Dosage: DAY 8
     Dates: start: 201410
  8. SYNTROM [Concomitant]
     Indication: ANTICOAGULANT THERAPY
     Route: 048

REACTIONS (1)
  - Pulmonary tuberculosis [Unknown]
